APPROVED DRUG PRODUCT: INDOMETHACIN
Active Ingredient: INDOMETHACIN
Strength: 25MG
Dosage Form/Route: CAPSULE;ORAL
Application: A091276 | Product #001 | TE Code: AB
Applicant: GLENMARK PHARMACEUTICALS LTD
Approved: Dec 22, 2010 | RLD: No | RS: No | Type: RX